FAERS Safety Report 13955880 (Version 1)
Quarter: 2017Q3

REPORT INFORMATION
  Report Type: Spontaneous
  Country: US (occurrence: US)
  Receive Date: 20170911
  Receipt Date: 20170911
  Transmission Date: 20171128
  Serious: No
  Sender: FDA-Public Use
  Company Number: US-SUNOVION-2017SUN003868

PATIENT
  Age: 87 Year
  Sex: Female
  Weight: 59.41 kg

DRUGS (2)
  1. LEVALBUTEROL TARTRATE. [Suspect]
     Active Substance: LEVALBUTEROL TARTRATE
     Indication: CHRONIC OBSTRUCTIVE PULMONARY DISEASE
     Dosage: UNK
     Route: 055
     Dates: start: 20170826
  2. LASIX [Concomitant]
     Indication: FLUID RETENTION
     Dosage: 20-30 MG QD/PO
     Route: 048

REACTIONS (5)
  - Asthenia [Unknown]
  - Dyspnoea [Unknown]
  - Muscle spasms [Unknown]
  - Myalgia [Unknown]
  - Diarrhoea [Unknown]

NARRATIVE: CASE EVENT DATE: 20170826
